FAERS Safety Report 5780971-1 (Version None)
Quarter: 2008Q2

REPORT INFORMATION
  Report Type: 
  Country: None (occurrence: None)
  Receive Date: 20080620
  Receipt Date: 20080611
  Transmission Date: 20081010
  Serious: Yes (Disabling)
  Sender: FDA-Public Use
  Company Number: CA-MERCK-0806CAN00098

PATIENT
  Sex: Male

DRUGS (6)
  1. JANUVIA [Suspect]
     Route: 048
     Dates: start: 20080601
  2. HYDROCHLOROTHIAZIDE AND IRBESARTAN [Concomitant]
     Route: 065
  3. DICLOFENAC [Concomitant]
     Route: 065
  4. OMEPRAZOLE SODIUM [Concomitant]
     Route: 065
  5. METFORMIN [Concomitant]
     Route: 065
  6. CALCIUM (UNSPECIFIED) AND MAGNESIUM (UNSPECIFIED) [Concomitant]
     Route: 065

REACTIONS (1)
  - ARTHRALGIA [None]
